FAERS Safety Report 24840760 (Version 1)
Quarter: 2025Q1

REPORT INFORMATION
  Report Type: Spontaneous
  Country: AT (occurrence: AT)
  Receive Date: 20250114
  Receipt Date: 20250114
  Transmission Date: 20250408
  Serious: Yes (Hospitalization, Other)
  Sender: SERVIER
  Company Number: AT-SERVIER-S25000180

PATIENT

DRUGS (1)
  1. TIBSOVO [Suspect]
     Active Substance: IVOSIDENIB
     Indication: Acute myeloid leukaemia
     Dosage: 500 MG, QD
     Route: 048
     Dates: start: 202401

REACTIONS (4)
  - Differentiation syndrome [Recovered/Resolved]
  - Leukocytosis [Recovered/Resolved]
  - Bone marrow failure [Recovering/Resolving]
  - Blood glucose fluctuation [Unknown]

NARRATIVE: CASE EVENT DATE: 20240101
